FAERS Safety Report 26211446 (Version 1)
Quarter: 2025Q4

REPORT INFORMATION
  Report Type: Spontaneous
  Country: EU (occurrence: EU)
  Receive Date: 20251230
  Receipt Date: 20251230
  Transmission Date: 20260117
  Serious: Yes (Other)
  Sender: ROCHE
  Company Number: EU-ROCHE-10000468049

PATIENT
  Age: 61 Year
  Sex: Female

DRUGS (4)
  1. ATEZOLIZUMAB [Suspect]
     Active Substance: ATEZOLIZUMAB
     Indication: Small cell lung cancer extensive stage
  2. ATEZOLIZUMAB [Suspect]
     Active Substance: ATEZOLIZUMAB
  3. CARBOPLATIN [Suspect]
     Active Substance: CARBOPLATIN
     Indication: Small cell lung cancer extensive stage
  4. ETOPOSIDE [Suspect]
     Active Substance: ETOPOSIDE
     Indication: Small cell lung cancer extensive stage

REACTIONS (11)
  - Hyponatraemia [Unknown]
  - Myalgia [Unknown]
  - Bone pain [Unknown]
  - Arthralgia [Unknown]
  - Pruritus [Unknown]
  - Chills [Recovered/Resolved]
  - Anaemia [Unknown]
  - Disease progression [Unknown]
  - Immune-mediated arthritis [Unknown]
  - Blood pressure increased [Recovered/Resolved]
  - Tachycardia [Recovered/Resolved]
